FAERS Safety Report 5503595-X (Version None)
Quarter: 2007Q4

REPORT INFORMATION
  Report Type: 
  Country: None (occurrence: None)
  Receive Date: 20071029
  Receipt Date: 20071015
  Transmission Date: 20080405
  Serious: Yes (Death)
  Sender: FDA-Public Use
  Company Number: 2007P1000678

PATIENT
  Age: 65 Year
  Sex: Male

DRUGS (7)
  1. BUSULFAN (BUSULFAN) [Suspect]
     Indication: STEM CELL TRANSPLANT
     Dosage: 32 ML; QD; IV
     Route: 042
     Dates: start: 20070727, end: 20070728
  2. FLUDARABINE PHOSPHATE [Concomitant]
  3. MELPHALAN [Concomitant]
  4. VALPROATE SODIUM [Concomitant]
  5. NEUPOGEN [Concomitant]
  6. TACROLIMUS [Concomitant]
  7. MYCOPHENOLATE MOFETIL [Concomitant]

REACTIONS (3)
  - ANOREXIA [None]
  - IDIOPATHIC PNEUMONIA SYNDROME [None]
  - STEM CELL TRANSPLANT [None]
